FAERS Safety Report 15480507 (Version 1)
Quarter: 2018Q4

REPORT INFORMATION
  Report Type: Spontaneous
  Country: CA (occurrence: CA)
  Receive Date: 20181010
  Receipt Date: 20181010
  Transmission Date: 20190205
  Serious: Yes (Other)
  Sender: FDA-Public Use
  Company Number: CA-ASTRAZENECA-2018SF29907

PATIENT
  Sex: Female

DRUGS (9)
  1. ACTEMRA [Concomitant]
     Active Substance: TOCILIZUMAB
  2. OXYNEO [Concomitant]
     Active Substance: OXYCODONE
     Dates: start: 20151221
  3. REMICADE [Concomitant]
     Active Substance: INFLIXIMAB
  4. ASPIRIN. [Concomitant]
     Active Substance: ASPIRIN
     Dates: start: 20171010
  5. INCRUSE ELLIPTA [Concomitant]
     Active Substance: UMECLIDINIUM BROMIDE
     Route: 055
     Dates: start: 20180417
  6. LOSEC [Suspect]
     Active Substance: OMEPRAZOLE
     Route: 048
     Dates: start: 20130110
  7. PLAQUENIL [Concomitant]
     Active Substance: HYDROXYCHLOROQUINE SULFATE
  8. BREO ELLIPTA [Concomitant]
     Active Substance: FLUTICASONE FUROATE\VILANTEROL TRIFENATATE
     Route: 055
     Dates: start: 20161115
  9. VERAPAMIL [Concomitant]
     Active Substance: VERAPAMIL HYDROCHLORIDE
     Dates: start: 20150721

REACTIONS (5)
  - Renal failure [Unknown]
  - Malaise [Unknown]
  - Cerebrovascular accident [Unknown]
  - Cardiac disorder [Unknown]
  - Chronic obstructive pulmonary disease [Unknown]
